FAERS Safety Report 9475614 (Version 1)
Quarter: 2013Q3

REPORT INFORMATION
  Report Type: Spontaneous
  Country: US (occurrence: None)
  Receive Date: 20130822
  Receipt Date: 20130822
  Transmission Date: 20140515
  Serious: No
  Sender: FDA-Public Use
  Company Number: None

PATIENT
  Age: 33 Year
  Sex: Male
  Weight: 79.5 kg

DRUGS (1)
  1. TRAMADOL HCL AND ACETAMINOPHEN [Suspect]
     Indication: MUSCLE SPASMS
     Dosage: 01 TAB, Q12H, ORAL?SINGLE DOES ON 08/14/13
     Route: 048
     Dates: start: 20130814

REACTIONS (5)
  - Urticaria [None]
  - Paraesthesia [None]
  - Pharyngeal disorder [None]
  - Pruritus [None]
  - Eye swelling [None]
